FAERS Safety Report 16655061 (Version 2)
Quarter: 2021Q4

REPORT INFORMATION
  Report Type: Spontaneous
  Country: CA (occurrence: CA)
  Receive Date: 20190801
  Receipt Date: 20211030
  Transmission Date: 20220304
  Serious: Yes (Hospitalization, Other)
  Sender: FDA-Public Use
  Company Number: CA-AUROBINDO-AUR-APL-2019-043933

PATIENT
  Age: 60 Year
  Sex: Male

DRUGS (15)
  1. LEVETIRACETAM [Suspect]
     Active Substance: LEVETIRACETAM
     Indication: Epilepsy
     Dosage: 1500.0 MILLIGRAM, TWO TIMES A DAY
     Route: 065
  2. MIDAZOLAM [Suspect]
     Active Substance: MIDAZOLAM
     Indication: Status epilepticus
     Dosage: 5.0 MILLIGRAM
     Route: 040
  3. MIDAZOLAM [Suspect]
     Active Substance: MIDAZOLAM
     Indication: Epilepsy
     Dosage: 30.0 MILLIGRAM, EVERY HOUR
     Route: 040
  4. MIDAZOLAM [Suspect]
     Active Substance: MIDAZOLAM
     Dosage: 5.0 MILLIGRAM
     Route: 040
  5. MIDAZOLAM [Suspect]
     Active Substance: MIDAZOLAM
     Dosage: 5.0 MILLIGRAM
     Route: 040
  6. MIDAZOLAM [Suspect]
     Active Substance: MIDAZOLAM
     Dosage: 30.0 MILLIGRAM
     Route: 051
  7. PROPOFOL [Suspect]
     Active Substance: PROPOFOL
     Indication: Status epilepticus
     Dosage: 30 MILLIGRAM
     Route: 040
  8. PROPOFOL [Suspect]
     Active Substance: PROPOFOL
     Indication: Epilepsy
     Dosage: 50.0 MICROGRAM/KILOGRAM, 1 MINUTE
     Route: 051
  9. PROPOFOL [Suspect]
     Active Substance: PROPOFOL
     Dosage: 50.0 MICROGRAM/KILOGRAM, EVERY 1 MINUTE
     Route: 051
  10. PROPOFOL [Suspect]
     Active Substance: PROPOFOL
     Dosage: 30.0 MILLIGRAM
     Route: 040
  11. PHENYTOIN [Suspect]
     Active Substance: PHENYTOIN
     Indication: Epilepsy
     Dosage: 250.0 MILLIGRAM, DAILY
     Route: 065
  12. PHENYTOIN [Suspect]
     Active Substance: PHENYTOIN
     Dosage: 150.0 MILLIGRAM, 3 TIMES A DAY
     Route: 065
  13. PHENYTOIN [Suspect]
     Active Substance: PHENYTOIN
     Dosage: 450.0 MILLIGRAM, DAILY
     Route: 065
  14. CLOBAZAM [Concomitant]
     Active Substance: CLOBAZAM
     Indication: Product used for unknown indication
     Dosage: UNK
     Route: 065
  15. PHENYTOIN [Concomitant]
     Active Substance: PHENYTOIN
     Indication: Product used for unknown indication
     Dosage: UNK
     Route: 065

REACTIONS (3)
  - Hypotension [Unknown]
  - Seizure [Unknown]
  - Drug ineffective [Unknown]
